FAERS Safety Report 17981158 (Version 1)
Quarter: 2020Q3

REPORT INFORMATION
  Report Type: Report from Study
  Country: IN (occurrence: IN)
  Receive Date: 20200705
  Receipt Date: 20200705
  Transmission Date: 20201103
  Serious: Yes (Other)
  Sender: FDA-Public Use
  Company Number: NVSC2020IN185566

PATIENT
  Age: 42 Year
  Sex: Male

DRUGS (1)
  1. TASIGNA [Suspect]
     Active Substance: NILOTINIB
     Indication: CHRONIC MYELOID LEUKAEMIA
     Dosage: 200 MG, BID
     Route: 065
     Dates: start: 20200313, end: 20200604

REACTIONS (5)
  - Drug ineffective [Not Recovered/Not Resolved]
  - Anal infection [Not Recovered/Not Resolved]
  - Inappropriate schedule of product administration [Unknown]
  - Pyrexia [Not Recovered/Not Resolved]
  - Proctalgia [Not Recovered/Not Resolved]

NARRATIVE: CASE EVENT DATE: 20200604
